FAERS Safety Report 6786299-5 (Version None)
Quarter: 2010Q2

REPORT INFORMATION
  Report Type: 
  Country: None (occurrence: None)
  Receive Date: 20100623
  Receipt Date: 20100615
  Transmission Date: 20101027
  Serious: Yes (Other)
  Sender: FDA-Public Use
  Company Number: DK-JNJCH-2010014333

PATIENT
  Sex: Female
  Weight: 66 kg

DRUGS (5)
  1. NICORETTE [Suspect]
     Indication: SMOKING CESSATION THERAPY
     Dosage: TEXT:10 MILLIGRAM ONCE A DAY
     Route: 062
     Dates: start: 20100520, end: 20100521
  2. ISODUR [Concomitant]
     Indication: ANGINA PECTORIS
     Dosage: TEXT:30MG ONCE DAILY
     Route: 048
  3. NITROGLYCERINE ^DAK^ [Concomitant]
     Indication: ANGINA PECTORIS
     Dosage: TEXT:0.5MG WHEN NEEDED
     Route: 048
  4. SIMVASTATIN [Concomitant]
     Indication: HYPERCHOLESTEROLAEMIA
     Dosage: TEXT:40MG ONCE IN THE EVENING
     Route: 048
  5. CITALOPRAM [Concomitant]
     Indication: DEPRESSION
     Dosage: TEXT:40MG ONCE DAILY
     Route: 048

REACTIONS (3)
  - PHARYNGEAL OEDEMA [None]
  - PRURITUS GENERALISED [None]
  - SWELLING FACE [None]
